FAERS Safety Report 20981587 (Version 5)
Quarter: 2022Q3

REPORT INFORMATION
  Report Type: Report from Study
  Country: DE (occurrence: DE)
  Receive Date: 20220620
  Receipt Date: 20220906
  Transmission Date: 20221027
  Serious: Yes (Death, Life-Threatening, Hospitalization)
  Sender: FDA-Public Use
  Company Number: DE-PFIZER INC-2021098945

PATIENT
  Age: 75 Year
  Sex: Male
  Weight: 96.299 kg

DRUGS (8)
  1. ABROCITINIB [Suspect]
     Active Substance: ABROCITINIB
     Indication: Dermatitis atopic
     Dosage: 200 MG, QD
     Route: 048
     Dates: start: 20190514, end: 20210129
  2. TRIAMCINOLONE ACETONIDE [Suspect]
     Active Substance: TRIAMCINOLONE ACETONIDE
     Indication: Osteoarthritis
     Dosage: 40 MG, SINGLE
     Route: 014
     Dates: start: 20210122, end: 20210122
  3. ALLOPURINOL [Concomitant]
     Active Substance: ALLOPURINOL
     Indication: Gout
     Dosage: 300 MG, 1X/DAY
     Route: 048
     Dates: start: 2015
  4. CANDESARTAN CILEXETIL\HYDROCHLOROTHIAZIDE [Concomitant]
     Active Substance: CANDESARTAN CILEXETIL\HYDROCHLOROTHIAZIDE
     Indication: Hypertension
     Dosage: [CANDESARTAN CILEXETIL 32 MG/HYDROCHLOROTHIAZIDE 25 MG], 1X/DAY
     Route: 048
     Dates: start: 2004
  5. METOPROLOL SUCCINATE [Concomitant]
     Active Substance: METOPROLOL SUCCINATE
     Indication: Hypertension
     Dosage: 23.75 MG, 1X/DAY
     Route: 048
     Dates: start: 20200702
  6. IBUPROFEN [Concomitant]
     Active Substance: IBUPROFEN
     Indication: Arthralgia
     Dosage: 400 MG, AS NEEDED
     Route: 048
     Dates: start: 202007, end: 202101
  7. IBUPROFEN [Concomitant]
     Active Substance: IBUPROFEN
     Dosage: 600 MG, 2X/DAY
     Route: 048
     Dates: start: 20210123, end: 20210123
  8. IBUPROFEN [Concomitant]
     Active Substance: IBUPROFEN
     Dosage: 600 MG, 4X/DAY
     Route: 048
     Dates: start: 20210123, end: 202101

REACTIONS (1)
  - Septic shock [Fatal]

NARRATIVE: CASE EVENT DATE: 20210123
